FAERS Safety Report 24765900 (Version 3)
Quarter: 2025Q1

REPORT INFORMATION
  Report Type: Report from Study
  Country: US (occurrence: US)
  Receive Date: 20241223
  Receipt Date: 20250114
  Transmission Date: 20250409
  Serious: Yes (Other)
  Sender: ROCHE
  Company Number: US-ROCHE-10000159304

PATIENT
  Age: 61 Year
  Sex: Male

DRUGS (7)
  1. OCREVUS [Suspect]
     Active Substance: OCRELIZUMAB
     Indication: Multiple sclerosis
     Route: 042
  2. LAMICTAL [Concomitant]
     Active Substance: LAMOTRIGINE
  3. ABILIFY [Concomitant]
     Active Substance: ARIPIPRAZOLE
  4. GLUCOTROL [Concomitant]
     Active Substance: GLIPIZIDE
  5. COLACE [Concomitant]
     Active Substance: DOCUSATE SODIUM
  6. CYMBALTA [Concomitant]
     Active Substance: DULOXETINE HYDROCHLORIDE
  7. SILDENAFIL CITRATE [Concomitant]
     Active Substance: SILDENAFIL CITRATE

REACTIONS (19)
  - Hypoaesthesia [Unknown]
  - Muscular weakness [Unknown]
  - Hemianopia [Unknown]
  - Hemiparesis [Unknown]
  - JC polyomavirus test positive [Unknown]
  - Muscle spasticity [Unknown]
  - Back pain [Unknown]
  - Paraesthesia [Unknown]
  - Dysphagia [Unknown]
  - Ataxia [Unknown]
  - CSF oligoclonal band present [Unknown]
  - Fall [Unknown]
  - Defaecation urgency [Unknown]
  - Micturition urgency [Unknown]
  - Uhthoff^s phenomenon [Unknown]
  - Gait disturbance [Unknown]
  - Knee deformity [Unknown]
  - Neck pain [Unknown]
  - Fatigue [Unknown]
